FAERS Safety Report 9263789 (Version 2)
Quarter: 2013Q3

REPORT INFORMATION
  Report Type: Spontaneous
  Country: US (occurrence: US)
  Receive Date: 20130430
  Receipt Date: 20130916
  Transmission Date: 20140515
  Serious: Yes (Other)
  Sender: FDA-Public Use
  Company Number: US-BAYER-2013-052645

PATIENT
  Age: 34 Year
  Sex: Female

DRUGS (4)
  1. YAZ [Suspect]
  2. YASMIN [Suspect]
  3. MOTRIN [Concomitant]
     Dosage: 800 MG, PRN
  4. IBUPROFEN [Concomitant]
     Dosage: 800 MG, UNK

REACTIONS (1)
  - Deep vein thrombosis [Recovered/Resolved]
